FAERS Safety Report 17256834 (Version 1)
Quarter: 2020Q1

REPORT INFORMATION
  Report Type: Spontaneous
  Country: IT (occurrence: IT)
  Receive Date: 20200110
  Receipt Date: 20200110
  Transmission Date: 20200409
  Serious: Yes (Hospitalization)
  Sender: FDA-Public Use
  Company Number: IT-TEVA-2020-IT-1164730

PATIENT
  Age: 68 Year
  Sex: Male
  Weight: 71 kg

DRUGS (12)
  1. CALCIODIE [Concomitant]
  2. PRAMIPEXOLE. [Concomitant]
     Active Substance: PRAMIPEXOLE
  3. PECFENT [Concomitant]
     Active Substance: FENTANYL CITRATE
  4. ELATREX [Concomitant]
     Dosage: 2 DF
  5. DEPAKIN CHRONO 300 MG COMPRESSE A RILASCIO PROLUNGATO [Concomitant]
     Active Substance: VALPROIC ACID
  6. CALCITRIOL. [Concomitant]
     Active Substance: CALCITRIOL
  7. VIMPAT [Concomitant]
     Active Substance: LACOSAMIDE
     Dosage: 100 MILLIGRAM
  8. PACLITAXEL. [Suspect]
     Active Substance: PACLITAXEL
     Indication: TRANSITIONAL CELL CARCINOMA
     Dosage: 80 MG/M2
     Route: 065
     Dates: start: 20191210, end: 20191210
  9. PAROXETINE. [Concomitant]
     Active Substance: PAROXETINE
     Dosage: 20 MILLIGRAM
  10. ZYLORIC [Concomitant]
     Active Substance: ALLOPURINOL
     Dosage: 150 MILLIGRAM
  11. MAG 2 [Concomitant]
     Active Substance: MAGNESIUM
  12. LASIX [Concomitant]
     Active Substance: FUROSEMIDE
     Dosage: 25 MILLIGRAM

REACTIONS (2)
  - Sopor [Unknown]
  - Diarrhoea [Unknown]

NARRATIVE: CASE EVENT DATE: 20191210
